FAERS Safety Report 5236509-0 (Version None)
Quarter: 2007Q1

REPORT INFORMATION
  Report Type: 
  Country: None (occurrence: None)
  Receive Date: 20070212
  Receipt Date: 20070202
  Transmission Date: 20070707
  Serious: Yes (Hospitalization)
  Sender: FDA-Public Use
  Company Number: US-MERCK-0702USA00610

PATIENT
  Sex: Male

DRUGS (2)
  1. SINGULAIR [Suspect]
     Indication: ASTHMA
     Route: 065
  2. [THERAPY UNSPECIFIED] [Concomitant]
     Indication: WOUND INFECTION

REACTIONS (1)
  - WOUND INFECTION [None]
